FAERS Safety Report 4396070-X (Version None)
Quarter: 2004Q2

REPORT INFORMATION
  Report Type: 
  Country: None (occurrence: None)
  Receive Date: 20040621
  Receipt Date: 20031125
  Transmission Date: 20050107
  Serious: Yes (Death)
  Sender: FDA-Public Use
  Company Number: USA-2003-0011075

PATIENT
  Age: 39 Year
  Sex: Male
  Weight: 96.1 kg

DRUGS (9)
  1. OXYCODONE HCL [Suspect]
  2. HYDROCODONE BITARTRATE [Suspect]
  3. COCAINE (COCAINE) [Suspect]
  4. BENZODIAZEPINE DERIVATIVES (BENZODIAZEPINE) [Suspect]
  5. CHLORDIAZEPOXIDE [Suspect]
  6. TRAZODONE HCL [Suspect]
  7. BENZOCAINE (BENZOCAINE) [Suspect]
  8. CAFFEINE (CAFFEINE) [Suspect]
  9. NICOTINE [Suspect]

REACTIONS (2)
  - ACCIDENTAL OVERDOSE [None]
  - MULTIPLE DRUG OVERDOSE [None]
